FAERS Safety Report 10414669 (Version 1)
Quarter: 2014Q3

REPORT INFORMATION
  Report Type: Spontaneous
  Country: CH (occurrence: CH)
  Receive Date: 20140828
  Receipt Date: 20140828
  Transmission Date: 20150326
  Serious: Yes (Death, Other)
  Sender: FDA-Public Use
  Company Number: CH-BRISTOL-MYERS SQUIBB COMPANY-21321799

PATIENT
  Age: 83 Year
  Sex: Male
  Weight: 77.8 kg

DRUGS (18)
  1. CRESTOR [Concomitant]
     Active Substance: ROSUVASTATIN CALCIUM
     Indication: HYPERCHOLESTEROLAEMIA
     Route: 048
     Dates: end: 20140802
  2. CEFEPIME HCL [Concomitant]
     Active Substance: CEFEPIME HYDROCHLORIDE
  3. GENTAMICIN [Concomitant]
     Active Substance: GENTAMICIN
  4. LITALIR CAPS [Suspect]
     Active Substance: HYDROXYUREA
     Indication: MYELOPROLIFERATIVE DISORDER
     Route: 048
     Dates: start: 20140725, end: 20140802
  5. EXFORGE HCT [Concomitant]
     Active Substance: AMLODIPINE BESYLATE\HYDROCHLOROTHIAZIDE\VALSARTAN
     Indication: HYPERTENSION
     Route: 048
     Dates: end: 20140802
  6. LASIX [Concomitant]
     Active Substance: FUROSEMIDE
  7. ZOFRAN [Concomitant]
     Active Substance: ONDANSETRON HYDROCHLORIDE
     Indication: PROPHYLAXIS
     Dosage: 8MG IV DRIP 1 PER DAY ON 01/02 AUG-2014; SUBLINGUAL 4 MG 31-JUL TO 02-AUG
     Route: 041
     Dates: start: 20140731, end: 20140802
  8. POTASSIUM CHLORIDE. [Concomitant]
     Active Substance: POTASSIUM CHLORIDE
     Indication: HYPOKALAEMIA
     Dosage: 1 DF- 8 MMOL
     Route: 048
     Dates: start: 20140726, end: 20140802
  9. DIFLUCAN [Concomitant]
     Active Substance: FLUCONAZOLE
     Indication: INFECTION PROPHYLAXIS
     Dates: start: 20140726, end: 20140802
  10. DAFALGAN [Concomitant]
     Active Substance: ACETAMINOPHEN
     Indication: PAIN
     Route: 048
     Dates: start: 20140729, end: 20140802
  11. PRIMPERAN [Concomitant]
     Active Substance: METOCLOPRAMIDE HYDROCHLORIDE
     Indication: NAUSEA
     Route: 048
     Dates: start: 20140729, end: 20140802
  12. PANTOZOL [Concomitant]
     Active Substance: PANTOPRAZOLE SODIUM
     Indication: PROPHYLAXIS
     Route: 048
     Dates: start: 20140724, end: 20140802
  13. NOVALGIN [Concomitant]
     Active Substance: METAMIZOLE SODIUM
     Route: 048
     Dates: start: 20140731, end: 20140803
  14. MORPHINE [Concomitant]
     Active Substance: MORPHINE
  15. DECITABINE. [Suspect]
     Active Substance: DECITABINE
     Indication: ACUTE MYELOMONOCYTIC LEUKAEMIA
     Dosage: 50MGINFUSION AMPOULES
     Route: 041
     Dates: start: 20140801, end: 20140802
  16. ZYLORIC [Concomitant]
     Active Substance: ALLOPURINOL
     Indication: PROPHYLAXIS
     Route: 048
     Dates: start: 20140725, end: 20140802
  17. ZOFRAN [Concomitant]
     Active Substance: ONDANSETRON HYDROCHLORIDE
     Indication: NAUSEA
     Dosage: 8MG IV DRIP 1 PER DAY ON 01/02 AUG-2014; SUBLINGUAL 4 MG 31-JUL TO 02-AUG
     Route: 041
     Dates: start: 20140731, end: 20140802
  18. STILNOX [Concomitant]
     Active Substance: ZOLPIDEM TARTRATE
     Indication: INSOMNIA
     Route: 048
     Dates: start: 20140725, end: 20140802

REACTIONS (9)
  - Rales [Recovered/Resolved]
  - Oedema peripheral [Recovered/Resolved]
  - Renal failure acute [Not Recovered/Not Resolved]
  - Shock [Fatal]
  - Dyspnoea [Not Recovered/Not Resolved]
  - Cardiac failure [Fatal]
  - Respiratory failure [Fatal]
  - Oxygen saturation decreased [Not Recovered/Not Resolved]
  - Jugular vein distension [Recovered/Resolved]

NARRATIVE: CASE EVENT DATE: 20140802
